FAERS Safety Report 23960497 (Version 1)
Quarter: 2024Q2

REPORT INFORMATION
  Report Type: Spontaneous
  Country: JP (occurrence: JP)
  Receive Date: 20240611
  Receipt Date: 20240611
  Transmission Date: 20240716
  Serious: Yes (Hospitalization, Disabling, Other)
  Sender: FDA-Public Use
  Company Number: JP-SUN PHARMACEUTICAL INDUSTRIES LTD-2024R1-450143

PATIENT
  Age: 70 Year
  Sex: Female

DRUGS (1)
  1. CARBIDOPA\LEVODOPA [Suspect]
     Active Substance: CARBIDOPA\LEVODOPA
     Indication: Progressive supranuclear palsy
     Dosage: 450 MILLIGRAM/DAY
     Route: 065

REACTIONS (3)
  - Drug resistance [Unknown]
  - Progressive supranuclear palsy [Unknown]
  - Therapy non-responder [Unknown]
